FAERS Safety Report 22841639 (Version 3)
Quarter: 2023Q4

REPORT INFORMATION
  Report Type: Spontaneous
  Country: US (occurrence: US)
  Receive Date: 20230821
  Receipt Date: 20231020
  Transmission Date: 20240110
  Serious: Yes (Other)
  Sender: FDA-Public Use
  Company Number: US-BEH-2023162186

PATIENT
  Sex: Female

DRUGS (29)
  1. HIZENTRA [Suspect]
     Active Substance: HUMAN IMMUNOGLOBULIN G
     Indication: Nicotine dependence
     Dosage: 13 GRAM, QW
     Route: 058
     Dates: start: 2019
  2. ATOMOXETINE HYDROCHLORIDE [Concomitant]
     Active Substance: ATOMOXETINE HYDROCHLORIDE
  3. FORMOTEROL FUMARATE [Concomitant]
     Active Substance: FORMOTEROL FUMARATE
  4. METHYLPHENIDATE HYDROCHLORIDE [Concomitant]
     Active Substance: METHYLPHENIDATE HYDROCHLORIDE
  5. METHYLPREDNISOLONE [Concomitant]
     Active Substance: METHYLPREDNISOLONE
  6. DONEPEZIL HYDROCHLORIDE [Concomitant]
     Active Substance: DONEPEZIL HYDROCHLORIDE
  7. STRATTERA [Concomitant]
     Active Substance: ATOMOXETINE HYDROCHLORIDE
  8. ALPRAZOLAM [Concomitant]
     Active Substance: ALPRAZOLAM
  9. WELLBUTRIN SR [Concomitant]
     Active Substance: BUPROPION HYDROCHLORIDE
  10. ALBUTEROL SULFATE [Concomitant]
     Active Substance: ALBUTEROL SULFATE
  11. BUDESONIDE [Concomitant]
     Active Substance: BUDESONIDE
  12. PERFOROMIST [Concomitant]
     Active Substance: FORMOTEROL FUMARATE DIHYDRATE
  13. DOXYCYCLINE [Concomitant]
     Active Substance: DOXYCYCLINE
  14. PREDNISONE [Concomitant]
     Active Substance: PREDNISONE
  15. LEVOFLOXACIN [Concomitant]
     Active Substance: LEVOFLOXACIN
  16. BREO ELLIPTA [Concomitant]
     Active Substance: FLUTICASONE FUROATE\VILANTEROL TRIFENATATE
  17. CALCIUM\VITAMIN D [Concomitant]
     Active Substance: CALCIUM\VITAMIN D
  18. CHANTIX [Concomitant]
     Active Substance: VARENICLINE TARTRATE
  19. INCRUSE ELLIPTA [Concomitant]
     Active Substance: UMECLIDINIUM BROMIDE
  20. LIPITOR [Concomitant]
     Active Substance: ATORVASTATIN CALCIUM
  21. METFORMIN HYDROCHLORIDE [Concomitant]
     Active Substance: METFORMIN HYDROCHLORIDE
  22. PROAIR HFA [Concomitant]
     Active Substance: ALBUTEROL SULFATE
  23. SINGULAIR [Concomitant]
     Active Substance: MONTELUKAST SODIUM
  24. SYNTHROID [Concomitant]
     Active Substance: LEVOTHYROXINE SODIUM
  25. THEOPHYLLINE [Concomitant]
     Active Substance: THEOPHYLLINE
  26. ZOLOFT [Concomitant]
     Active Substance: SERTRALINE HYDROCHLORIDE
  27. TYLENOL [Concomitant]
     Active Substance: ACETAMINOPHEN
     Indication: Premedication
  28. TYLENOL [Concomitant]
     Active Substance: ACETAMINOPHEN
     Indication: Premedication
  29. BENADRYL [Concomitant]
     Active Substance: DIPHENHYDRAMINE HYDROCHLORIDE
     Indication: Premedication

REACTIONS (19)
  - Pruritus [Recovered/Resolved]
  - Headache [Recovered/Resolved]
  - Tooth abscess [Recovered/Resolved]
  - No adverse event [Unknown]
  - Off label use [Unknown]
  - Inappropriate schedule of product administration [Unknown]
  - Depressed mood [Unknown]
  - Affect lability [Unknown]
  - Fatigue [Unknown]
  - Sciatica [Unknown]
  - Nerve compression [Unknown]
  - Neck pain [Unknown]
  - Arthralgia [Unknown]
  - Blood creatinine increased [Unknown]
  - Dehydration [Unknown]
  - Diabetes mellitus [Unknown]
  - Blood glucose increased [Unknown]
  - Injection site bruising [Unknown]
  - Memory impairment [Unknown]

NARRATIVE: CASE EVENT DATE: 20230101
